FAERS Safety Report 11441273 (Version 1)
Quarter: 2015Q3

REPORT INFORMATION
  Report Type: Spontaneous
  Country: US (occurrence: US)
  Receive Date: 20150821
  Receipt Date: 20150821
  Transmission Date: 20151125
  Serious: No
  Sender: FDA-Public Use
  Company Number: US-ELI_LILLY_AND_COMPANY-US200804007180

PATIENT
  Age: 19 Year
  Sex: Female

DRUGS (1)
  1. CYMBALTA [Suspect]
     Active Substance: DULOXETINE HYDROCHLORIDE
     Indication: DIABETIC NEUROPATHY
     Dosage: 30 MG, 2/D
     Dates: start: 20080315, end: 20080415

REACTIONS (4)
  - Nausea [Unknown]
  - Paraesthesia [Unknown]
  - Nervousness [Unknown]
  - Psychomotor hyperactivity [Unknown]
